FAERS Safety Report 9263380 (Version 1)
Quarter: 2013Q2

REPORT INFORMATION
  Report Type: Spontaneous
  Country: US (occurrence: US)
  Receive Date: 20130430
  Receipt Date: 20130430
  Transmission Date: 20140414
  Serious: No
  Sender: FDA-Public Use
  Company Number: US-ABBOTT-13P-163-1070641-00

PATIENT
  Age: 63 Year
  Sex: Male
  Weight: 65.83 kg

DRUGS (4)
  1. CREON [Suspect]
     Indication: PANCREATITIS CHRONIC
     Dosage: 3 WITH EACH MEAL
     Route: 048
     Dates: start: 201302
  2. METFORMIN [Concomitant]
     Indication: DIABETES MELLITUS
  3. LIPITOR [Concomitant]
     Indication: BLOOD CHOLESTEROL INCREASED
  4. UNKNOWN BLOOD PRESSURE MED [Concomitant]
     Indication: HYPERTENSION

REACTIONS (1)
  - Blood glucose increased [Not Recovered/Not Resolved]
